FAERS Safety Report 16212206 (Version 1)
Quarter: 2019Q2

REPORT INFORMATION
  Report Type: Spontaneous
  Country: US (occurrence: US)
  Receive Date: 20190418
  Receipt Date: 20190418
  Transmission Date: 20190711
  Serious: Yes (Other)
  Sender: FDA-Public Use
  Company Number: US-GLENMARK PHARMACEUTICALS-2019GMK040715

PATIENT
  Age: 29 Year
  Sex: Male

DRUGS (1)
  1. NAPROXEN. [Suspect]
     Active Substance: NAPROXEN
     Indication: PRODUCT USED FOR UNKNOWN INDICATION
     Dosage: 3000 MG, OD (EXTREMELY HIGH DOSES, FOR AT LEAST 2 DAYS)
     Route: 065

REACTIONS (3)
  - Overdose [Recovered/Resolved]
  - Spinal epidural haematoma [Recovered/Resolved]
  - Radiculopathy [Recovered/Resolved]
